FAERS Safety Report 7427935-X (Version None)
Quarter: 2011Q2

REPORT INFORMATION
  Report Type: 
  Country: None (occurrence: None)
  Receive Date: 20110412
  Receipt Date: 20110329
  Transmission Date: 20111010
  Serious: Yes (Hospitalization)
  Sender: FDA-Public Use
  Company Number: 2011001464

PATIENT
  Age: 68 Year
  Sex: Female
  Weight: 59 kg

DRUGS (11)
  1. SORAFENIB [Suspect]
     Indication: LUNG NEOPLASM MALIGNANT
     Dosage: (400 MG, BID) , ORAL
     Route: 048
     Dates: start: 20101213
  2. OMEPRAZOLE [Concomitant]
  3. VALTREX [Concomitant]
  4. PREDNISONE [Concomitant]
  5. PRANDIN [Concomitant]
  6. MELOXICAM [Concomitant]
  7. FERROUS SULFATE TAB [Concomitant]
  8. LOMOTIL [Concomitant]
  9. CALCIUM + D(CALCIUM WITH VITAMIN D) [Concomitant]
  10. ERLOTINIB (ERLOTINIB) (TABLET) (ERLOTINIB) [Suspect]
     Indication: LUNG NEOPLASM MALIGNANT
     Dosage: (150 MG), ORAL
     Route: 048
     Dates: start: 20101213
  11. LEVEMIR [Concomitant]

REACTIONS (1)
  - CARDIAC FAILURE CONGESTIVE [None]
